FAERS Safety Report 8690029 (Version 2)
Quarter: 2012Q4

REPORT INFORMATION
  Report Type: 
  Country: US (occurrence: US)
  Receive Date: 20120727
  Receipt Date: 20120918
  Transmission Date: 20130627
  Serious: No
  Sender: FDA-Public Use
  Company Number: US-ASTRAZENECA-2012SE10328

PATIENT
  Age: 51 Year
  Sex: Female
  Weight: 68 kg

DRUGS (14)
  1. SEROQUEL XR [Suspect]
     Indication: ANXIETY
     Route: 048
  2. SEROQUEL XR [Suspect]
     Indication: DEPRESSION
     Route: 048
  3. SEROQUEL XR [Suspect]
     Indication: SLEEP DISORDER
     Route: 048
  4. SEROQUEL XR [Suspect]
     Indication: ANXIETY
     Route: 048
  5. SEROQUEL XR [Suspect]
     Indication: DEPRESSION
     Route: 048
  6. SEROQUEL XR [Suspect]
     Indication: SLEEP DISORDER
     Route: 048
  7. SEROQUEL XR [Suspect]
     Indication: ANXIETY
     Route: 048
     Dates: start: 20111017
  8. SEROQUEL XR [Suspect]
     Indication: DEPRESSION
     Route: 048
     Dates: start: 20111017
  9. SEROQUEL XR [Suspect]
     Indication: SLEEP DISORDER
     Route: 048
     Dates: start: 20111017
  10. SEROQUEL XR [Suspect]
     Indication: ANXIETY
     Route: 048
  11. SEROQUEL XR [Suspect]
     Indication: DEPRESSION
     Route: 048
  12. SEROQUEL XR [Suspect]
     Indication: SLEEP DISORDER
     Route: 048
  13. OTHER MEDICATION [Suspect]
  14. LEVOTHYROXINE [Concomitant]

REACTIONS (4)
  - Adverse event [Recovered/Resolved]
  - Depressive symptom [Recovered/Resolved]
  - Off label use [Unknown]
  - Adverse drug reaction [Unknown]
